FAERS Safety Report 7859421-7 (Version None)
Quarter: 2011Q4

REPORT INFORMATION
  Report Type: 
  Country: None (occurrence: None)
  Receive Date: 20111017
  Receipt Date: 20111017
  Transmission Date: 20120403
  Serious: Yes (Hospitalization)
  Sender: FDA-Public Use
  Company Number: None

PATIENT
  Sex: Male
  Weight: 110.6777 kg

DRUGS (10)
  1. OMEPRAZOLE [Concomitant]
  2. MICARDIS [Concomitant]
  3. CITALOPRAM HYDROBROMIDE [Concomitant]
  4. POTASSIUM CHLORIDE [Concomitant]
  5. HYDROCHLOROTHIAZIDE [Concomitant]
  6. AMLODIPINE [Concomitant]
  7. CLOPIDOGREL [Suspect]
     Indication: ANTIPLATELET THERAPY
     Dosage: 75 MG, QD
     Dates: start: 20100608
  8. TOPROL ER [Concomitant]
  9. SIMVASTATIN [Concomitant]
  10. CLONOPIN [Concomitant]

REACTIONS (1)
  - CORONARY ARTERY STENOSIS [None]
